FAERS Safety Report 10921135 (Version 2)
Quarter: 2015Q2

REPORT INFORMATION
  Report Type: Spontaneous
  Country: SI (occurrence: SI)
  Receive Date: 20150317
  Receipt Date: 20150505
  Transmission Date: 20150821
  Serious: Yes (Death, Other)
  Sender: FDA-Public Use
  Company Number: SI-PFIZER INC-2015091673

PATIENT
  Sex: Male

DRUGS (3)
  1. SUTENT [Suspect]
     Active Substance: SUNITINIB MALATE
     Dosage: 37.5 MG, UNK
     Route: 048
     Dates: start: 201411
  2. SUTENT [Suspect]
     Active Substance: SUNITINIB MALATE
     Indication: METASTATIC RENAL CELL CARCINOMA
     Dosage: 50 MG, CYCLIC (SHEMA 4+2)
     Route: 048
     Dates: start: 201207
  3. SUTENT [Suspect]
     Active Substance: SUNITINIB MALATE
     Dosage: 25 - 37.5. MG (SCHEMA 4+2)
     Route: 048

REACTIONS (12)
  - Hypertension [Unknown]
  - Altered state of consciousness [Unknown]
  - Hypertension [Unknown]
  - Haemoptysis [Unknown]
  - Constipation [Unknown]
  - Nervous system disorder [Unknown]
  - Hypoalbuminaemia [Unknown]
  - Renal impairment [Unknown]
  - Hypothyroidism [Unknown]
  - Death [Fatal]
  - Nephrotic syndrome [Unknown]
  - Nausea [Unknown]

NARRATIVE: CASE EVENT DATE: 201301
